FAERS Safety Report 10626399 (Version 3)
Quarter: 2014Q4

REPORT INFORMATION
  Report Type: Spontaneous
  Country: JP (occurrence: JP)
  Receive Date: 20141204
  Receipt Date: 20141215
  Transmission Date: 20150529
  Serious: Yes (Life-Threatening, Other)
  Sender: FDA-Public Use
  Company Number: JP-BAYER-2014-105108

PATIENT
  Age: 74 Year
  Sex: Male
  Weight: 64 kg

DRUGS (9)
  1. AMLODIPINE [Concomitant]
     Active Substance: AMLODIPINE BESYLATE
     Indication: HYPERTENSION
     Dosage: DAILY DOSE 10 MG
     Route: 048
     Dates: start: 20130809
  2. PARIET [Concomitant]
     Active Substance: RABEPRAZOLE SODIUM
     Indication: GASTRIC ULCER
     Dosage: DAILY DOSE 10 MG
     Route: 048
     Dates: start: 20130809
  3. LASIX [Concomitant]
     Active Substance: FUROSEMIDE
     Indication: ASCITES
     Dosage: DAILY DOSE 10 MG
     Route: 048
     Dates: start: 20130809
  4. LIVACT [Concomitant]
     Active Substance: AMINO ACIDS
     Indication: HEPATIC CIRRHOSIS
     Dosage: DAILY DOSE 3 DF
     Route: 048
     Dates: start: 20130809
  5. NEXAVAR [Suspect]
     Active Substance: SORAFENIB
     Indication: HEPATOCELLULAR CARCINOMA
     Dosage: 800 MG DAILY
     Route: 048
     Dates: start: 20140610, end: 20140626
  6. VILDAGLIPTIN [Concomitant]
     Active Substance: VILDAGLIPTIN
     Indication: DIABETES MELLITUS
     Dosage: DAILY DOSE 100 MG
     Route: 048
     Dates: start: 20131112
  7. GLAKAY [Concomitant]
     Indication: HEPATIC CIRRHOSIS
     Dosage: DAILY DOSE 45 MG
     Route: 048
     Dates: start: 20130809
  8. URSO [Concomitant]
     Active Substance: URSODIOL
     Indication: HEPATIC CIRRHOSIS
     Dosage: DAILY DOSE 600 MG
     Route: 048
     Dates: start: 20130809
  9. ACECOL [Concomitant]
     Active Substance: TEMOCAPRIL HYDROCHLORIDE
     Indication: HYPERTENSION
     Dosage: DAILY DOSE 2 MG
     Route: 048
     Dates: start: 20130809

REACTIONS (6)
  - Bacteraemia [Recovered/Resolved]
  - Enteritis infectious [Recovered/Resolved]
  - Platelet count decreased [Recovered/Resolved]
  - Septic shock [Recovered/Resolved]
  - Acute kidney injury [Recovered/Resolved]
  - Blood pressure decreased [Recovered/Resolved]

NARRATIVE: CASE EVENT DATE: 20140626
